FAERS Safety Report 17996485 (Version 1)
Quarter: 2020Q3

REPORT INFORMATION
  Report Type: Spontaneous
  Country: US (occurrence: US)
  Receive Date: 20200708
  Receipt Date: 20200708
  Transmission Date: 20201103
  Serious: Yes (Other)
  Sender: FDA-Public Use
  Company Number: US-ASTRAZENECA-2019SF91994

PATIENT
  Age: 61 Year
  Sex: Female

DRUGS (27)
  1. ELAVIL [Concomitant]
     Active Substance: AMITRIPTYLINE HYDROCHLORIDE
  2. SPIRONOLACTONE. [Concomitant]
     Active Substance: SPIRONOLACTONE
  3. METFORMIN [Concomitant]
     Active Substance: METFORMIN HYDROCHLORIDE
  4. CALCIUM + MAGNESIUM CARBONATES [Concomitant]
  5. BUDESONIDE. [Suspect]
     Active Substance: BUDESONIDE
     Route: 055
  6. ALBUTEROL. [Concomitant]
     Active Substance: ALBUTEROL
  7. DULERA [Concomitant]
     Active Substance: FORMOTEROL FUMARATE DIHYDRATE\MOMETASONE FUROATE
  8. PREGABALIN. [Concomitant]
     Active Substance: PREGABALIN
  9. PRILOSEC [Concomitant]
     Active Substance: OMEPRAZOLE MAGNESIUM
  10. PYRIDOXINE HCI [Concomitant]
     Active Substance: PYRIDOXINE HYDROCHLORIDE
  11. LISINOPRIL. [Suspect]
     Active Substance: LISINOPRIL
     Route: 048
  12. KLOR?CON [Concomitant]
     Active Substance: POTASSIUM CHLORIDE
  13. METOPROLOL TARTRATE. [Suspect]
     Active Substance: METOPROLOL TARTRATE
     Route: 065
  14. OMEPRAZOLE. [Suspect]
     Active Substance: OMEPRAZOLE
     Route: 048
  15. LOMOTIL [Concomitant]
     Active Substance: ATROPINE SULFATE\DIPHENOXYLATE HYDROCHLORIDE
  16. HYDROXYCHLOROQUINE [Concomitant]
     Active Substance: HYDROXYCHLOROQUINE
  17. CLOBETASOL [Concomitant]
     Active Substance: CLOBETASOL
  18. VITAMIN B12 [Concomitant]
     Active Substance: CYANOCOBALAMIN
  19. FOLIC ACID. [Concomitant]
     Active Substance: FOLIC ACID
  20. IMODIUM A [Concomitant]
  21. SINGULAIR [Concomitant]
     Active Substance: MONTELUKAST SODIUM
  22. MORPHINE [Concomitant]
     Active Substance: MORPHINE
  23. PYRIDOXINE HCL [Concomitant]
     Active Substance: PYRIDOXINE HYDROCHLORIDE
  24. EPIPEN [Concomitant]
     Active Substance: EPINEPHRINE
  25. FUROSEMIDE. [Concomitant]
     Active Substance: FUROSEMIDE
  26. ATROVENT [Concomitant]
     Active Substance: IPRATROPIUM BROMIDE
  27. MESALAMINE. [Concomitant]
     Active Substance: MESALAMINE

REACTIONS (21)
  - Hydrosalpinx [Unknown]
  - Osteoarthritis [Unknown]
  - Constipation [Unknown]
  - Hypoglycaemia [Unknown]
  - Cardiac failure congestive [Unknown]
  - Pain [Unknown]
  - Coronary artery disease [Unknown]
  - Vitamin D deficiency [Unknown]
  - Neuropathy peripheral [Unknown]
  - Hypertonic bladder [Unknown]
  - Ovarian cyst [Unknown]
  - Inguinal hernia [Unknown]
  - Hypersensitivity [Unknown]
  - Back pain [Unknown]
  - Swelling [Unknown]
  - Fibromyalgia [Unknown]
  - Arthralgia [Unknown]
  - Crohn^s disease [Unknown]
  - Hiatus hernia [Unknown]
  - Rhinitis [Unknown]
  - Diabetes mellitus [Unknown]
